FAERS Safety Report 21573578 (Version 1)
Quarter: 2022Q4

REPORT INFORMATION
  Report Type: Spontaneous
  Country: MX (occurrence: MX)
  Receive Date: 20221109
  Receipt Date: 20221109
  Transmission Date: 20230113
  Serious: Yes (Disabling, Other)
  Sender: FDA-Public Use
  Company Number: MX-009507513-2211MEX001480

PATIENT
  Sex: Female

DRUGS (1)
  1. JANUMET [Suspect]
     Active Substance: METFORMIN HYDROCHLORIDE\SITAGLIPTIN PHOSPHATE
     Dosage: (STRENGTH: 50/850 MG)
     Route: 048

REACTIONS (10)
  - Diabetic metabolic decompensation [Unknown]
  - Amnesia [Unknown]
  - Myocardial infarction [Unknown]
  - Diabetes mellitus inadequate control [Unknown]
  - Feeling abnormal [Unknown]
  - Bone pain [Unknown]
  - Fatigue [Unknown]
  - Pain in extremity [Unknown]
  - Inability to afford medication [Unknown]
  - Product dose omission issue [Unknown]
